FAERS Safety Report 5235872-4 (Version None)
Quarter: 2007Q1

REPORT INFORMATION
  Report Type: 
  Country: None (occurrence: None)
  Receive Date: 20061208
  Receipt Date: 20060508
  Transmission Date: 20070707
  Serious: Yes (Other)
  Sender: FDA-Public Use
  Company Number: 2006UW08968

PATIENT
  Age: 61 Year
  Sex: Male
  Weight: 90.264 kg

DRUGS (6)
  1. CRESTOR [Suspect]
     Indication: BLOOD CHOLESTEROL INCREASED
     Dates: start: 20060428
  2. FLAX SEED OIL [Concomitant]
  3. VERAPAMIL [Concomitant]
  4. ALPRAZOLAM [Concomitant]
  5. BLOOD PRESSURE MEDICATION [Concomitant]
  6. VITAMIN TAB [Concomitant]

REACTIONS (1)
  - GASTROOESOPHAGEAL REFLUX DISEASE [None]
